FAERS Safety Report 9704598 (Version 1)
Quarter: 2013Q4

REPORT INFORMATION
  Report Type: Spontaneous
  Country: US (occurrence: None)
  Receive Date: 20131121
  Receipt Date: 20131121
  Transmission Date: 20140711
  Serious: No
  Sender: FDA-Public Use
  Company Number: None

PATIENT
  Age: 0 Day
  Sex: Female

DRUGS (7)
  1. CITALOPRAM [Suspect]
     Dates: start: 20120806, end: 20120922
  2. TRIMETHOPRIM-SULFAMETHOX [Suspect]
     Dates: start: 20120901
  3. ASPIRIN [Concomitant]
  4. CALCIUM WITH VITAMIN D3 [Concomitant]
  5. CLONAZEPAM [Concomitant]
  6. FISH OIL [Concomitant]
  7. MULTIVITAMIN [Concomitant]

REACTIONS (4)
  - Drug-induced liver injury [None]
  - Encephalopathy [None]
  - Condition aggravated [None]
  - Coagulopathy [None]
